FAERS Safety Report 13616910 (Version 1)
Quarter: 2017Q2

REPORT INFORMATION
  Report Type: Spontaneous
  Country: US (occurrence: US)
  Receive Date: 20170606
  Receipt Date: 20170606
  Transmission Date: 20170830
  Serious: No
  Sender: FDA-Public Use
  Company Number: US-SA-2016SA129563

PATIENT
  Age: 53 Year
  Sex: Female

DRUGS (4)
  1. LANTUS SOLOSTAR [Suspect]
     Active Substance: INSULIN GLARGINE
     Indication: DIABETES MELLITUS
     Dosage: DOSE:36 UNIT(S)
     Route: 065
     Dates: start: 201510
  2. LANTUS SOLOSTAR [Suspect]
     Active Substance: INSULIN GLARGINE
     Indication: DIABETES MELLITUS
     Dosage: DOSE:36 UNIT(S)
     Route: 065
     Dates: start: 201510
  3. HUMALOG [Concomitant]
     Active Substance: INSULIN LISPRO
     Dosage: DURING THE DAYTIME
     Route: 065
  4. SOLOSTAR [Concomitant]
     Active Substance: DEVICE
     Indication: DIABETES MELLITUS
     Route: 065
     Dates: start: 201510

REACTIONS (1)
  - Malaise [Recovered/Resolved]
